FAERS Safety Report 7926218-9 (Version None)
Quarter: 2011Q4

REPORT INFORMATION
  Report Type: 
  Country: None (occurrence: None)
  Receive Date: 20111118
  Receipt Date: 20111109
  Transmission Date: 20120403
  Serious: Yes (Hospitalization)
  Sender: FDA-Public Use
  Company Number: US-BIOGENIDEC-2010BI009086

PATIENT
  Age: 66 Year
  Sex: Female
  Weight: 44 kg

DRUGS (53)
  1. BACLOFEN [Concomitant]
  2. BACLOFEN [Concomitant]
  3. BOTOX [Concomitant]
     Route: 058
     Dates: start: 20090602
  4. ZYPREXA [Concomitant]
  5. GEODON [Concomitant]
     Route: 048
     Dates: start: 20090518
  6. GEODON [Concomitant]
  7. XOPENEX [Concomitant]
     Route: 055
     Dates: start: 20090518
  8. LYRICA [Concomitant]
     Route: 048
  9. CALCIUM [Concomitant]
  10. ALPRAZOLAM [Concomitant]
     Route: 048
     Dates: start: 20090518
  11. DANTROLENE [Concomitant]
     Route: 048
     Dates: start: 20100120
  12. DEPAKOTE ER [Concomitant]
     Route: 048
     Dates: start: 20091215
  13. FUROSEMIDE [Concomitant]
     Route: 048
     Dates: start: 20090518
  14. RECLAST [Concomitant]
     Route: 042
     Dates: start: 20090603
  15. VESICARE [Concomitant]
     Route: 048
     Dates: start: 20100210
  16. ZOLOFT [Concomitant]
     Route: 048
     Dates: start: 20090518
  17. BENADRYL [Concomitant]
  18. DIPHENOXYLATE [Concomitant]
  19. ASCORBIC ACID [Concomitant]
  20. LORTAB [Concomitant]
     Route: 048
     Dates: start: 20090518
  21. METOPROLOL TARTRATE [Concomitant]
     Route: 048
  22. POTASSIUM [Concomitant]
     Route: 048
     Dates: start: 20090518
  23. FERROUS SULFATE TAB [Concomitant]
     Route: 048
  24. NYSTATIN [Concomitant]
  25. CRANBERRY [Concomitant]
     Route: 048
     Dates: start: 20090518
  26. FOSAMAX [Concomitant]
     Route: 048
     Dates: start: 20090518
  27. METOPROLOL TARTRATE [Concomitant]
     Route: 048
     Dates: start: 20090515
  28. PROMETHAZINE [Concomitant]
  29. ENABLEX [Concomitant]
  30. VITAMINS (NOS) [Concomitant]
  31. TIZANIDINE HCL [Concomitant]
     Route: 048
     Dates: start: 20091118
  32. TIZANIDINE HCL [Concomitant]
  33. VITAMIN D [Concomitant]
     Route: 048
     Dates: start: 20100210
  34. NAPROXEN (ALEVE) [Concomitant]
  35. CLONIDINE [Concomitant]
  36. ACETAMINOPHEN [Concomitant]
  37. BACLOFEN [Concomitant]
     Route: 048
     Dates: start: 20091215
  38. BACLOFEN [Concomitant]
  39. REMIFEMIN [Concomitant]
     Route: 048
     Dates: start: 20090518
  40. IRON [Concomitant]
  41. TYSABRI [Suspect]
     Indication: MULTIPLE SCLEROSIS
     Route: 042
     Dates: start: 20090715, end: 20110726
  42. AMBIEN CR [Concomitant]
     Route: 048
     Dates: start: 20090629
  43. DANTROLENE [Concomitant]
  44. DULCOLAX [Concomitant]
     Route: 048
     Dates: start: 20090518
  45. ERGOCALCIFEROL [Concomitant]
     Route: 048
     Dates: start: 20091215
  46. GLYCOLAX [Concomitant]
     Route: 048
     Dates: start: 20090813
  47. MUCOMYST [Concomitant]
  48. HYDROCODONE BITARTRATE [Concomitant]
  49. IBUPROFEN (ADVIL) [Concomitant]
  50. ZYPREXA [Concomitant]
  51. ZOLOFT [Concomitant]
  52. VITAMIN B COMPLEX CAP [Concomitant]
  53. PROMETHAZINE [Concomitant]

REACTIONS (4)
  - MENTAL STATUS CHANGES [None]
  - PNEUMONIA [None]
  - RESPIRATORY FAILURE [None]
  - URINARY TRACT INFECTION [None]
